FAERS Safety Report 7288098-7 (Version None)
Quarter: 2011Q1

REPORT INFORMATION
  Report Type: 
  Country: None (occurrence: None)
  Receive Date: 20110211
  Receipt Date: 20110127
  Transmission Date: 20110831
  Serious: Yes (Hospitalization)
  Sender: FDA-Public Use
  Company Number: PHFR2011IE00927

PATIENT
  Sex: Female

DRUGS (2)
  1. CLOZARIL [Suspect]
     Indication: SCHIZOPHRENIA
     Route: 048
     Dates: start: 19980930, end: 20110121
  2. CLOZARIL [Suspect]
     Dosage: UNK
     Route: 048

REACTIONS (3)
  - ILEUS PARALYTIC [None]
  - ABDOMINAL DISTENSION [None]
  - BLOOD ALBUMIN DECREASED [None]
